FAERS Safety Report 7124588-5 (Version None)
Quarter: 2010Q4

REPORT INFORMATION
  Report Type: 
  Country: None (occurrence: None)
  Receive Date: 20101123
  Receipt Date: 20101123
  Transmission Date: 20110411
  Serious: No
  Sender: FDA-Public Use
  Company Number: None

PATIENT
  Sex: Female

DRUGS (1)
  1. DEXTROSE [Suspect]
     Dates: start: 20101117, end: 20101117

REACTIONS (1)
  - DEVICE MALFUNCTION [None]
